FAERS Safety Report 4450024-3 (Version None)
Quarter: 2004Q3

REPORT INFORMATION
  Report Type: 
  Country: None (occurrence: None)
  Receive Date: 20040915
  Receipt Date: 20040304
  Transmission Date: 20050211
  Serious: Yes (Other)
  Sender: FDA-Public Use
  Company Number: PHEH2004US02696

PATIENT
  Age: 69 Year
  Sex: Male

DRUGS (15)
  1. ZOMETA [Suspect]
     Indication: PROPHYLAXIS
     Dosage: 4 MG MONTHLY
     Route: 042
     Dates: start: 20020101, end: 20031201
  2. HYDROCORTISONE [Concomitant]
     Dosage: 20 MG, QD
     Route: 048
     Dates: start: 20010901
  3. NIZORAL [Concomitant]
     Dates: start: 20030701
  4. ANDROGEL [Concomitant]
     Indication: BLOOD TESTOSTERONE ABNORMAL
     Dosage: 10 MG, UNK
  5. AVODART [Concomitant]
     Indication: HYPERTENSION
     Dosage: .5 MG, UNK
  6. PROSCAR [Concomitant]
     Indication: PROSTATE CANCER
     Dosage: 5 MG, UNK
     Dates: start: 19980101
  7. CELEBREX [Concomitant]
     Dosage: 200 MG, BID
  8. VITAMIN B6 [Concomitant]
  9. DITROPAN [Concomitant]
     Dosage: 10 MG, UNK
  10. ALTACE [Concomitant]
     Dosage: 2.5 MG, UNK
  11. AMITRIPTYLINE HCL [Concomitant]
     Dosage: 35 MG, UNK
  12. COUMADIN [Concomitant]
     Indication: ANTICOAGULANT THERAPY
     Dosage: UNK, PRN
  13. LOTENSIN [Concomitant]
     Indication: HYPERTENSION
     Dosage: 10 MG, UNK
  14. DECADRON [Concomitant]
     Dosage: UNK, UNK
     Dates: start: 19980101
  15. TOPROL-XL [Concomitant]
     Dosage: 100 MG, UNK

REACTIONS (6)
  - BONE DISORDER [None]
  - LOCALISED INFECTION [None]
  - ORAL INFECTION [None]
  - OSTEONECROSIS [None]
  - SURGERY [None]
  - WOUND DEBRIDEMENT [None]
